FAERS Safety Report 26205291 (Version 1)
Quarter: 2025Q4

REPORT INFORMATION
  Report Type: Spontaneous
  Country: TR (occurrence: TR)
  Receive Date: 20251228
  Receipt Date: 20251228
  Transmission Date: 20260117
  Serious: Yes (Hospitalization, Other)
  Sender: IPSEN BIOPHARMACEUTICALS, INC.
  Company Number: TR-IPSEN Group, Research and Development-2025-31711

PATIENT
  Age: 6 Year
  Sex: Female

DRUGS (2)
  1. BOTULINUM TOXIN TYPE A [Suspect]
     Active Substance: BOTULINUM TOXIN TYPE A
     Indication: Neurogenic bladder
     Dosage: 30 UNITS/KILOGRAM INTRAVESICAL, FOR NEUROGENIC BLADDER.
  2. BOTULINUM TOXIN TYPE A [Suspect]
     Active Substance: BOTULINUM TOXIN TYPE A
     Indication: Off label use

REACTIONS (7)
  - Respiratory failure [Unknown]
  - Dysphonia [Unknown]
  - Dysphagia [Unknown]
  - Dyspnoea [Unknown]
  - Hypercapnia [Unknown]
  - Muscular weakness [Unknown]
  - Off label use [Unknown]
